FAERS Safety Report 17744884 (Version 1)
Quarter: 2020Q2

REPORT INFORMATION
  Report Type: Spontaneous
  Country: US (occurrence: US)
  Receive Date: 20200504
  Receipt Date: 20200504
  Transmission Date: 20200714
  Serious: Yes (Hospitalization)
  Sender: FDA-Public Use
  Company Number: None

PATIENT
  Age: 67 Year
  Sex: Male

DRUGS (3)
  1. ACETAMIN [Concomitant]
     Active Substance: ACETAMINOPHEN
  2. TAMSULOSIN [Concomitant]
     Active Substance: TAMSULOSIN
  3. ABIRATERONE. [Suspect]
     Active Substance: ABIRATERONE ACETATE
     Indication: PROSTATE CANCER
     Route: 048
     Dates: start: 20190711

REACTIONS (2)
  - Therapy interrupted [None]
  - Back pain [None]

NARRATIVE: CASE EVENT DATE: 20200501
